FAERS Safety Report 7969622-5 (Version None)
Quarter: 2011Q4

REPORT INFORMATION
  Report Type: 
  Country: None (occurrence: None)
  Receive Date: 20111208
  Receipt Date: 20111122
  Transmission Date: 20120403
  Serious: Yes (Hospitalization, Other)
  Sender: FDA-Public Use
  Company Number: 1000024269

PATIENT
  Age: 34 Year
  Sex: Female

DRUGS (13)
  1. ADDERALL (OBETROL)-(OBETROL) [Concomitant]
  2. VIIBRYD [Suspect]
     Indication: MAJOR DEPRESSION
     Dosage: 40 MG (40 MG, 1 IN 1 D),ORAL, 20 MG (20 MG, 1 IN 1 D),ORAL,  10 MG (10 MG, 1 IN 1 D),ORAL
     Route: 048
     Dates: start: 20110929, end: 20111005
  3. VIIBRYD [Suspect]
     Indication: GENERALISED ANXIETY DISORDER
     Dosage: 40 MG (40 MG, 1 IN 1 D),ORAL, 20 MG (20 MG, 1 IN 1 D),ORAL,  10 MG (10 MG, 1 IN 1 D),ORAL
     Route: 048
     Dates: start: 20110929, end: 20111005
  4. VIIBRYD [Suspect]
     Indication: MAJOR DEPRESSION
     Dosage: 40 MG (40 MG, 1 IN 1 D),ORAL, 20 MG (20 MG, 1 IN 1 D),ORAL,  10 MG (10 MG, 1 IN 1 D),ORAL
     Route: 048
     Dates: start: 20110922, end: 20110928
  5. VIIBRYD [Suspect]
     Indication: GENERALISED ANXIETY DISORDER
     Dosage: 40 MG (40 MG, 1 IN 1 D),ORAL, 20 MG (20 MG, 1 IN 1 D),ORAL,  10 MG (10 MG, 1 IN 1 D),ORAL
     Route: 048
     Dates: start: 20110922, end: 20110928
  6. VIIBRYD [Suspect]
     Indication: MAJOR DEPRESSION
     Dosage: 40 MG (40 MG, 1 IN 1 D),ORAL, 20 MG (20 MG, 1 IN 1 D),ORAL,  10 MG (10 MG, 1 IN 1 D),ORAL
     Route: 048
     Dates: start: 20110811, end: 20110921
  7. VIIBRYD [Suspect]
     Indication: GENERALISED ANXIETY DISORDER
     Dosage: 40 MG (40 MG, 1 IN 1 D),ORAL, 20 MG (20 MG, 1 IN 1 D),ORAL,  10 MG (10 MG, 1 IN 1 D),ORAL
     Route: 048
     Dates: start: 20110811, end: 20110921
  8. LEXAPRO [Suspect]
  9. KLONOPIN [Concomitant]
  10. VIIBRYD [Suspect]
     Indication: GENERALISED ANXIETY DISORDER
     Dosage: 10 MG (10 MG, 1 IN 1 D), ORAL, 20 MG (20 MG, 1 IN 1 D),ORAL
     Route: 048
     Dates: start: 20110728, end: 20110803
  11. VIIBRYD [Suspect]
     Indication: MAJOR DEPRESSION
     Dosage: 10 MG (10 MG, 1 IN 1 D), ORAL, 20 MG (20 MG, 1 IN 1 D),ORAL
     Route: 048
     Dates: start: 20110728, end: 20110803
  12. VIIBRYD [Suspect]
     Indication: GENERALISED ANXIETY DISORDER
     Dosage: 10 MG (10 MG, 1 IN 1 D), ORAL, 20 MG (20 MG, 1 IN 1 D),ORAL
     Route: 048
     Dates: start: 20110804, end: 20110810
  13. VIIBRYD [Suspect]
     Indication: MAJOR DEPRESSION
     Dosage: 10 MG (10 MG, 1 IN 1 D), ORAL, 20 MG (20 MG, 1 IN 1 D),ORAL
     Route: 048
     Dates: start: 20110804, end: 20110810

REACTIONS (12)
  - PARAESTHESIA [None]
  - INSOMNIA [None]
  - CONDITION AGGRAVATED [None]
  - TREMOR [None]
  - ANXIETY [None]
  - DEPRESSED MOOD [None]
  - ECZEMA [None]
  - ABNORMAL DREAMS [None]
  - DYSPNOEA [None]
  - SEROTONIN SYNDROME [None]
  - PANIC ATTACK [None]
  - MYOCLONUS [None]
